FAERS Safety Report 21759419 (Version 1)
Quarter: 2022Q4

REPORT INFORMATION
  Report Type: Spontaneous
  Country: PL (occurrence: PL)
  Receive Date: 20221221
  Receipt Date: 20221221
  Transmission Date: 20230113
  Serious: Yes (Other)
  Sender: FDA-Public Use
  Company Number: PL-AMGEN-POLSP2022215699

PATIENT
  Age: 60 Year
  Sex: Female
  Weight: 78 kg

DRUGS (7)
  1. PROLIA [Suspect]
     Active Substance: DENOSUMAB
     Indication: Osteoporosis postmenopausal
     Dosage: 1X EVERY 6 MONTHS
     Route: 058
     Dates: start: 202008, end: 20210202
  2. MEBEVERINE [Concomitant]
     Active Substance: MEBEVERINE
     Dosage: UNK
     Dates: start: 20210112
  3. JUVIT D3 [Concomitant]
     Dosage: UNK
  4. ACARD [Concomitant]
     Dosage: UNK
     Dates: start: 202012
  5. Calperos [Concomitant]
     Dosage: UNK
  6. LANSOPRAZOLE [Concomitant]
     Active Substance: LANSOPRAZOLE
     Dosage: UNK
     Dates: start: 20210203
  7. MAGLEK B6 [Concomitant]

REACTIONS (5)
  - Oedema [Recovering/Resolving]
  - Headache [Recovering/Resolving]
  - Erythema [Recovering/Resolving]
  - Erythema of eyelid [Recovering/Resolving]
  - Sensation of foreign body [Recovering/Resolving]

NARRATIVE: CASE EVENT DATE: 20210203
